FAERS Safety Report 8607390-4 (Version None)
Quarter: 2012Q3

REPORT INFORMATION
  Report Type: 
  Country: None (occurrence: None)
  Receive Date: 20120821
  Receipt Date: 20120811
  Transmission Date: 20120928
  Serious: Yes (Hospitalization)
  Sender: FDA-Public Use
  Company Number: US-BAYER-2012-031661

PATIENT
  Age: 29 Year
  Sex: Female
  Weight: 68.027 kg

DRUGS (7)
  1. CALCIUM +VIT D [Concomitant]
     Dosage: 600 MG, BID
     Route: 048
     Dates: start: 20100503
  2. CALCIUM +VIT D [Concomitant]
     Dosage: 200 MG, BID
     Route: 048
     Dates: start: 20100503
  3. CALCIUM CARBONATE [Concomitant]
  4. YAZ [Suspect]
     Indication: PREMENSTRUAL SYNDROME
  5. YAZ [Suspect]
     Indication: ACNE
     Dosage: UNK
     Dates: start: 20080301, end: 20100401
  6. SYNTHROID [Concomitant]
     Dosage: 75 MCG DAILY
     Route: 048
     Dates: start: 20100503
  7. LEVOTHYROXINE SODIUM [Concomitant]
     Indication: HYPOTHYROIDISM
     Dosage: UNK
     Dates: start: 20070101

REACTIONS (3)
  - PULMONARY EMBOLISM [None]
  - DEEP VEIN THROMBOSIS [None]
  - PAIN [None]
